FAERS Safety Report 4311184-8 (Version None)
Quarter: 2004Q1

REPORT INFORMATION
  Report Type: 
  Country: None (occurrence: None)
  Receive Date: 20040302
  Receipt Date: 20040302
  Transmission Date: 20041129
  Serious: Yes (Life-Threatening, Hospitalization)
  Sender: FDA-Public Use
  Company Number: None

PATIENT
  Age: 56 Year
  Sex: Male
  Weight: 84.7 kg

DRUGS (10)
  1. IBUPROFEN [Suspect]
  2. HYDROCHLOROTHIAZIDE [Concomitant]
  3. VERAPAMIL [Concomitant]
  4. TERAZOSIN HCL [Concomitant]
  5. DOCUSATE [Concomitant]
  6. PSYLLIUM MUCILLOID [Concomitant]
  7. RANITIDINE [Concomitant]
  8. TERAZOSIN HCL [Concomitant]
  9. ASPIRIN [Suspect]
  10. NSAIDS [Suspect]

REACTIONS (1)
  - GASTROINTESTINAL HAEMORRHAGE [None]
